FAERS Safety Report 17481426 (Version 2)
Quarter: 2020Q1

REPORT INFORMATION
  Report Type: Spontaneous
  Country: US (occurrence: US)
  Receive Date: 20200302
  Receipt Date: 20200316
  Transmission Date: 20200409
  Serious: Yes (Other)
  Sender: FDA-Public Use
  Company Number: US-009507513-1812USA008110

PATIENT
  Sex: Female

DRUGS (2)
  1. STERILE DILUENT (WATER) [Suspect]
     Active Substance: WATER
     Dosage: UNK
     Route: 065
     Dates: start: 20140716
  2. ZOSTAVAX [Suspect]
     Active Substance: VARICELLA-ZOSTER VIRUS STRAIN OKA/MERCK LIVE ANTIGEN
     Indication: PROPHYLAXIS
     Dosage: .65 MILLILITER
     Route: 065
     Dates: start: 20140716

REACTIONS (6)
  - Post herpetic neuralgia [Unknown]
  - Cataract [Unknown]
  - Herpes zoster [Unknown]
  - Periorbital cellulitis [Unknown]
  - Dry eye [Unknown]
  - Vaccination failure [Unknown]

NARRATIVE: CASE EVENT DATE: 2016
